FAERS Safety Report 6571717-8 (Version None)
Quarter: 2010Q1

REPORT INFORMATION
  Report Type: 
  Country: None (occurrence: None)
  Receive Date: 20100205
  Receipt Date: 20100127
  Transmission Date: 20100710
  Serious: Yes (Other)
  Sender: FDA-Public Use
  Company Number: KR-PFIZER INC-2010011285

PATIENT
  Age: 27 Year
  Sex: Female

DRUGS (3)
  1. NEURONTIN [Suspect]
     Indication: BONE TUBERCULOSIS
     Dosage: UNK
     Route: 048
     Dates: end: 20090901
  2. LYRICA [Suspect]
     Indication: BONE TUBERCULOSIS
     Dosage: 75 MG, 2X/DAY
     Route: 048
     Dates: start: 20090901, end: 20091020
  3. LYRICA [Suspect]
     Dosage: 150 MG, 2X/DAY
     Route: 048
     Dates: start: 20091021

REACTIONS (1)
  - ENDOMETRIAL HYPERPLASIA [None]
